FAERS Safety Report 18223863 (Version 3)
Quarter: 2021Q3

REPORT INFORMATION
  Report Type: Spontaneous
  Country: FR (occurrence: FR)
  Receive Date: 20200902
  Receipt Date: 20210901
  Transmission Date: 20211014
  Serious: Yes (Hospitalization)
  Sender: FDA-Public Use
  Company Number: FR-EISAI MEDICAL RESEARCH-EC-2020-079650

PATIENT
  Age: 53 Year
  Sex: Female
  Weight: 88 kg

DRUGS (2)
  1. HALAVEN [Suspect]
     Active Substance: ERIBULIN MESYLATE
     Indication: BREAST CANCER METASTATIC
     Dosage: DOSE NOT PROVIDED
     Route: 042
     Dates: start: 202005, end: 20200720
  2. HALAVEN [Suspect]
     Active Substance: ERIBULIN MESYLATE
     Route: 042
     Dates: start: 20200721, end: 20200721

REACTIONS (7)
  - Diabetic ketoacidosis [Recovering/Resolving]
  - Thirst [Unknown]
  - Diabetes insipidus [Not Recovered/Not Resolved]
  - Nausea [Unknown]
  - Hyperglycaemia [Unknown]
  - Decreased appetite [Not Recovered/Not Resolved]
  - Weight decreased [Unknown]

NARRATIVE: CASE EVENT DATE: 20200723
